FAERS Safety Report 13095963 (Version 1)
Quarter: 2017Q1

REPORT INFORMATION
  Report Type: Spontaneous
  Country: US (occurrence: US)
  Receive Date: 20170109
  Receipt Date: 20170109
  Transmission Date: 20170428
  Serious: Yes (Disabling, Other)
  Sender: FDA-Public Use
  Company Number: US-AUROBINDO-AUR-APL-2016-16207

PATIENT
  Age: 75 Year
  Sex: Male

DRUGS (2)
  1. VANCOMYCIN [Suspect]
     Active Substance: VANCOMYCIN
     Indication: PROPHYLAXIS
     Dosage: UNK, INTRACAMERAL
     Route: 065
  2. VANCOMYCIN [Suspect]
     Active Substance: VANCOMYCIN
     Dosage: UNK, INTRACAMERAL, GIVEN ONE WEEK LATER
     Route: 065

REACTIONS (3)
  - Blindness [Unknown]
  - Toxicity to various agents [Unknown]
  - Retinal vasculitis [Unknown]
